FAERS Safety Report 6814006-6 (Version None)
Quarter: 2010Q2

REPORT INFORMATION
  Report Type: 
  Country: None (occurrence: None)
  Receive Date: 20100628
  Receipt Date: 20100617
  Transmission Date: 20101027
  Serious: Yes (Other)
  Sender: FDA-Public Use
  Company Number: 20108930

PATIENT
  Sex: Female

DRUGS (1)
  1. LIORESAL [Suspect]
     Indication: MUSCLE SPASTICITY
     Dosage: 175.7 MCG, DAILY, INTRATHECAL
     Route: 037

REACTIONS (8)
  - DRUG EFFECT DECREASED [None]
  - IMPLANT SITE EFFUSION [None]
  - INCISION SITE COMPLICATION [None]
  - INTRACRANIAL HYPOTENSION [None]
  - INTRACRANIAL PRESSURE INCREASED [None]
  - POST PROCEDURAL COMPLICATION [None]
  - SEROMA [None]
  - TREATMENT FAILURE [None]
